FAERS Safety Report 13794776 (Version 1)
Quarter: 2017Q3

REPORT INFORMATION
  Report Type: Spontaneous
  Country: US (occurrence: US)
  Receive Date: 20170726
  Receipt Date: 20170726
  Transmission Date: 20171127
  Serious: No
  Sender: FDA-Public Use
  Company Number: US-TARO-2017TAR00065

PATIENT
  Sex: Male

DRUGS (1)
  1. CARBAMAZEPINE EXTENDED RELEASE CAPSULES 200 MG [Suspect]
     Active Substance: CARBAMAZEPINE

REACTIONS (1)
  - Drug ineffective [Unknown]
